FAERS Safety Report 17715398 (Version 1)
Quarter: 2020Q2

REPORT INFORMATION
  Report Type: Spontaneous
  Country: CN (occurrence: CN)
  Receive Date: 20200427
  Receipt Date: 20200427
  Transmission Date: 20200714
  Serious: Yes (Life-Threatening, Other)
  Sender: FDA-Public Use
  Company Number: CN-PFIZER INC-2020166112

PATIENT
  Age: 78 Year
  Sex: Male
  Weight: 45 kg

DRUGS (3)
  1. ARGININE ASPIRIN [Suspect]
     Active Substance: ASPIRIN ARGININE
     Indication: ANTIPYRESIS
     Dosage: 1 G, 1X/DAY
     Route: 041
     Dates: start: 20200412, end: 20200412
  2. SOLU-MEDROL [Suspect]
     Active Substance: METHYLPREDNISOLONE SODIUM SUCCINATE
     Indication: ANTIPYRESIS
     Dosage: 40 MG, 1X/DAY
     Route: 041
     Dates: start: 20200412, end: 20200412
  3. SODIUM CHLORIDE. [Concomitant]
     Active Substance: SODIUM CHLORIDE
     Indication: VEHICLE SOLUTION USE
     Dosage: 250 ML, 1X/DAY
     Route: 041
     Dates: start: 20200412, end: 20200412

REACTIONS (2)
  - Gastrointestinal haemorrhage [Recovering/Resolving]
  - Vomiting [Recovering/Resolving]

NARRATIVE: CASE EVENT DATE: 20200412
